FAERS Safety Report 9788406 (Version 1)
Quarter: 2013Q4

REPORT INFORMATION
  Report Type: Report from Study
  Country: BR (occurrence: BR)
  Receive Date: 20131230
  Receipt Date: 20131230
  Transmission Date: 20140711
  Serious: Yes (Disabling)
  Sender: FDA-Public Use
  Company Number: PHHY2013BR151841

PATIENT
  Sex: Male
  Weight: 62 kg

DRUGS (1)
  1. ONBREZ [Suspect]
     Indication: DYSPNOEA
     Dosage: 300 MG, BID
     Route: 055

REACTIONS (7)
  - Choking [Not Recovered/Not Resolved]
  - Paralysis [Not Recovered/Not Resolved]
  - Lung disorder [Not Recovered/Not Resolved]
  - Cardiac disorder [Not Recovered/Not Resolved]
  - Thrombosis [Not Recovered/Not Resolved]
  - Diabetes mellitus [Not Recovered/Not Resolved]
  - Inappropriate schedule of drug administration [Unknown]
